FAERS Safety Report 26179369 (Version 2)
Quarter: 2025Q4

REPORT INFORMATION
  Report Type: Report from Study
  Country: US (occurrence: None)
  Receive Date: 20251219
  Receipt Date: 20251224
  Transmission Date: 20260118
  Serious: Yes (Other)
  Sender: UCB
  Company Number: US-UCBSA-2025076549

PATIENT
  Age: 63 Year

DRUGS (4)
  1. LACOSAMIDE [Suspect]
     Active Substance: LACOSAMIDE
     Indication: Epilepsy
     Dosage: 200 MILLIGRAM, 3X/DAY (TID)
     Route: 061
  2. LACOSAMIDE [Suspect]
     Active Substance: LACOSAMIDE
     Indication: Seizure
     Dosage: 150 MILLIGRAM, ONCE DAILY (QD) (50MG 3T WITH LUNCH)
     Route: 061
  3. LACOSAMIDE [Suspect]
     Active Substance: LACOSAMIDE
     Dosage: 200 MILLIGRAM, 2X/DAY (BID)
     Route: 061
  4. LACOSAMIDE [Suspect]
     Active Substance: LACOSAMIDE
     Dosage: 50 MILLIGRAM, 3T AT LUNCH
     Route: 061

REACTIONS (5)
  - Focal dyscognitive seizures [Recovered/Resolved]
  - Seizure [Recovered/Resolved]
  - Chest pain [Unknown]
  - Overdose [Unknown]
  - Inappropriate schedule of product administration [Unknown]
